FAERS Safety Report 23584573 (Version 3)
Quarter: 2025Q3

REPORT INFORMATION
  Report Type: Report from Study
  Country: US (occurrence: US)
  Receive Date: 20240301
  Receipt Date: 20250722
  Transmission Date: 20251021
  Serious: Yes (Other)
  Sender: AMGEN
  Company Number: US-AMGEN-USASP2024038225

PATIENT
  Age: 60 Year
  Sex: Female

DRUGS (3)
  1. PROLIA [Suspect]
     Active Substance: DENOSUMAB
     Indication: Osteoporosis postmenopausal
     Dosage: 60 MILLIGRAM, Q6MO
     Route: 058
     Dates: start: 202307
  2. EVENITY [Suspect]
     Active Substance: ROMOSOZUMAB-AQQG
     Indication: Pathological fracture
     Dosage: UNK UNK, QMO
     Route: 058
     Dates: start: 20220405, end: 202302
  3. EVENITY [Suspect]
     Active Substance: ROMOSOZUMAB-AQQG
     Indication: Bone density abnormal

REACTIONS (10)
  - Spinal fracture [Recovered/Resolved]
  - Drug effect less than expected [Unknown]
  - Arthralgia [Recovered/Resolved]
  - Foot fracture [Not Recovered/Not Resolved]
  - Sinusitis [Recovered/Resolved]
  - Osteoarthritis [Recovered/Resolved]
  - Tendonitis [Recovered/Resolved]
  - Back disorder [Recovered/Resolved]
  - Fall [Unknown]
  - Impaired healing [Unknown]

NARRATIVE: CASE EVENT DATE: 20230701
